FAERS Safety Report 17073959 (Version 1)
Quarter: 2019Q4

REPORT INFORMATION
  Report Type: Spontaneous
  Country: GB (occurrence: GB)
  Receive Date: 20191126
  Receipt Date: 20191126
  Transmission Date: 20200122
  Serious: Yes (Hospitalization)
  Sender: FDA-Public Use
  Company Number: GB-TEVA-2019-GB-1140923

PATIENT
  Age: 87 Year
  Sex: Male

DRUGS (12)
  1. METHOTREXATE. [Suspect]
     Active Substance: METHOTREXATE
     Dosage: 15MG/0.3ML/ METOJECT  WEEK
     Route: 058
  2. WARFARIN [Concomitant]
     Active Substance: WARFARIN
     Dosage: 2MG MON, 3MG REST OF WEEK
  3. BRIMONIDINE [Concomitant]
     Active Substance: BRIMONIDINE TARTRATE
     Dosage: IN BOTH EYES, 2 GTT/ DAY
     Route: 031
  4. LORATADINE. [Concomitant]
     Active Substance: LORATADINE
     Dosage: IN THE MORNING, 10MG/ DAY
  5. SIMVASTATIN. [Concomitant]
     Active Substance: SIMVASTATIN
     Dosage: AT NIGHT, 40MG/ DAY
     Route: 048
  6. BUPRENORPHINE. [Concomitant]
     Active Substance: BUPRENORPHINE
     Dosage: 20MICROGRAMS/HOUR, 1 DF/ WEEK
     Route: 062
  7. TAMSULOSIN [Concomitant]
     Active Substance: TAMSULOSIN
     Dosage: IN THE MORNING, 400MCG/ DAY
     Route: 048
  8. DOCUSATE [Concomitant]
     Active Substance: DOCUSATE
     Dosage: 400MG/ DAY
     Route: 048
  9. PREDNISOLONE. [Concomitant]
     Active Substance: PREDNISOLONE
     Dosage: IN THE MORNING, 1 MG/ DAY
     Route: 048
  10. LANSOPRAZOLE. [Concomitant]
     Active Substance: LANSOPRAZOLE
     Dosage: IN THE MORNING, 15 MG/ DAY
  11. BIMATOPROST. [Concomitant]
     Active Substance: BIMATOPROST
     Dosage: AT NIGHT, 100 MICROGRAMS/ML, 1 GTT/ DAY
     Route: 031
  12. ALENDRONIC ACID [Concomitant]
     Active Substance: ALENDRONIC ACID
     Dosage: 70MG/ WEEK

REACTIONS (1)
  - Ophthalmic herpes zoster [Recovered/Resolved]
